FAERS Safety Report 10945229 (Version 2)
Quarter: 2015Q2

REPORT INFORMATION
  Report Type: Spontaneous
  Country: US (occurrence: US)
  Receive Date: 20150323
  Receipt Date: 20150409
  Transmission Date: 20150821
  Serious: Yes (Other)
  Sender: FDA-Public Use
  Company Number: US-MALLINCKRODT-T201501350

PATIENT
  Sex: Female

DRUGS (12)
  1. DULERA [Concomitant]
     Active Substance: FORMOTEROL FUMARATE DIHYDRATE\MOMETASONE FUROATE
  2. KEPPRA [Concomitant]
     Active Substance: LEVETIRACETAM
  3. PRAVASTATIN [Concomitant]
     Active Substance: PRAVASTATIN\PRAVASTATIN SODIUM
  4. GABLOFEN [Suspect]
     Active Substance: BACLOFEN
     Indication: MUSCLE SPASTICITY
     Dosage: 850 MCG/DAY
     Route: 037
     Dates: start: 20150106
  5. LISINOPRIL. [Concomitant]
     Active Substance: LISINOPRIL
  6. LYRICA [Concomitant]
     Active Substance: PREGABALIN
  7. GABLOFEN [Suspect]
     Active Substance: BACLOFEN
     Dosage: UNK
     Route: 037
  8. DILTIAZEM [Concomitant]
     Active Substance: DILTIAZEM
  9. NEXIUM [Concomitant]
     Active Substance: ESOMEPRAZOLE MAGNESIUM
  10. LEXAPRO [Concomitant]
     Active Substance: ESCITALOPRAM OXALATE
  11. ASPIRIN. [Concomitant]
     Active Substance: ASPIRIN
  12. ZYPREXA [Concomitant]
     Active Substance: OLANZAPINE

REACTIONS (1)
  - Arteriospasm coronary [Recovered/Resolved]
